FAERS Safety Report 8193129-6 (Version None)
Quarter: 2012Q1

REPORT INFORMATION
  Report Type: 
  Country: None (occurrence: None)
  Receive Date: 20120221
  Receipt Date: 20111128
  Transmission Date: 20120608
  Serious: No
  Sender: FDA-Public Use
  Company Number: 1000024004

PATIENT
  Age: 56 Year
  Sex: Female

DRUGS (4)
  1. VIIBRYD [Suspect]
     Indication: DEPRESSION
     Dosage: 10 MG (10 MG, 1 IN 1 D), ORAL
     Route: 048
     Dates: start: 20110901, end: 20110908
  2. VICODIN [Concomitant]
  3. SIMVASTATIN [Concomitant]
  4. ATIVAN [Concomitant]

REACTIONS (2)
  - TREMOR [None]
  - INSOMNIA [None]
